FAERS Safety Report 15310127 (Version 2)
Quarter: 2018Q4

REPORT INFORMATION
  Report Type: Spontaneous
  Country: US (occurrence: US)
  Receive Date: 20180823
  Receipt Date: 20181120
  Transmission Date: 20190204
  Serious: No
  Sender: FDA-Public Use
  Company Number: US-PFIZER INC-2018334685

PATIENT

DRUGS (4)
  1. GABAPENTIN. [Suspect]
     Active Substance: GABAPENTIN
     Dosage: UNK, 3X/DAY (100 IN MORNING AND 100 IN THE AFTERNOON AND THEN TAKING IT 200 AT NIGHT TO SLEEP)
  2. GABAPENTIN. [Suspect]
     Active Substance: GABAPENTIN
     Dosage: 200 MG, UNK (FOR COUPLE OF DAYS)
  3. GABAPENTIN. [Suspect]
     Active Substance: GABAPENTIN
     Indication: SLEEP DISORDER
     Dosage: 100 MG, UNK (FOR COUPLE OF DAYS )
  4. GABAPENTIN. [Suspect]
     Active Substance: GABAPENTIN
     Dosage: 100 MG, UNK (TOOK MYSELF BACK DOWN TO 100)

REACTIONS (5)
  - Product use in unapproved indication [Unknown]
  - Anxiety [Unknown]
  - Clumsiness [Unknown]
  - Intentional product use issue [Unknown]
  - Coordination abnormal [Unknown]
